FAERS Safety Report 5487350-5 (Version None)
Quarter: 2007Q4

REPORT INFORMATION
  Report Type: 
  Country: None (occurrence: None)
  Receive Date: 20071016
  Receipt Date: 20071009
  Transmission Date: 20080405
  Serious: Yes (Hospitalization)
  Sender: FDA-Public Use
  Company Number: US-ROXANE LABORATORIES, INC-2007-BP-22429RO

PATIENT
  Sex: Female
  Weight: 77 kg

DRUGS (3)
  1. COCAINE HCL TOPICAL SOLUTION, 4% [Suspect]
     Indication: ANAESTHESIA
     Route: 061
     Dates: start: 20071003, end: 20071003
  2. XYLOCAINE W/ EPINEPHRINE [Suspect]
     Indication: ANAESTHESIA
     Route: 061
     Dates: start: 20071003, end: 20071003
  3. NEOSYNEPHRINE [Suspect]
     Indication: ANAESTHESIA
     Route: 061
     Dates: start: 20071003, end: 20071003

REACTIONS (1)
  - SUPRAVENTRICULAR TACHYCARDIA [None]
